FAERS Safety Report 23707854 (Version 1)
Quarter: 2024Q2

REPORT INFORMATION
  Report Type: Report from Study
  Country: US (occurrence: US)
  Receive Date: 20240404
  Receipt Date: 20240404
  Transmission Date: 20240716
  Serious: Yes (Other)
  Sender: FDA-Public Use
  Company Number: US-BIOVITRUM-2023-US-019281

PATIENT
  Age: 72 Year
  Sex: Female

DRUGS (3)
  1. KINERET [Suspect]
     Active Substance: ANAKINRA
     Indication: Still^s disease
     Dosage: DAILY
     Route: 058
     Dates: start: 20190501
  2. KINERET [Suspect]
     Active Substance: ANAKINRA
     Dosage: 4 TIMES A DAY
     Dates: start: 2022
  3. KINERET [Suspect]
     Active Substance: ANAKINRA
     Dosage: 4 TIMES A DAY
     Dates: start: 2020

REACTIONS (11)
  - Rheumatoid arthritis [Unknown]
  - Intentional product misuse [Not Recovered/Not Resolved]
  - Product use issue [Unknown]
  - Depressed mood [Unknown]
  - Inappropriate schedule of product administration [Unknown]
  - Dyspnoea [Unknown]
  - Emotional disorder [Unknown]
  - Loss of personal independence in daily activities [Unknown]
  - Pain [Unknown]
  - Condition aggravated [Unknown]
  - Injection site mass [Not Recovered/Not Resolved]

NARRATIVE: CASE EVENT DATE: 20190501
